FAERS Safety Report 6168303-0 (Version None)
Quarter: 2009Q2

REPORT INFORMATION
  Report Type: 
  Country: None (occurrence: None)
  Receive Date: 20090427
  Receipt Date: 20090416
  Transmission Date: 20091009
  Serious: Yes (Death, Hospitalization)
  Sender: FDA-Public Use
  Company Number: IT-PFIZER INC-2006060048

PATIENT

DRUGS (8)
  1. SUNITINIB MALATE [Suspect]
     Indication: METASTATIC RENAL CELL CARCINOMA
     Dosage: 50 MG, 1X/DAY
     Route: 048
     Dates: start: 20060410
  2. MEGESTROL ACETATE [Suspect]
     Indication: ILL-DEFINED DISORDER
     Dosage: 160 MG, 1X/DAY
     Route: 048
     Dates: start: 20060328
  3. FENTANYL [Concomitant]
     Route: 062
     Dates: start: 20060101
  4. COMBISARTAN [Concomitant]
     Route: 048
     Dates: start: 19960101
  5. LEVOTHYROXINE SODIUM [Concomitant]
     Route: 048
     Dates: start: 19880101
  6. DEXAMETHASONE [Concomitant]
     Route: 030
     Dates: start: 20060410
  7. DICLOFENAC [Concomitant]
     Route: 048
     Dates: start: 20060328
  8. PARACETAMOL [Concomitant]
     Route: 048
     Dates: start: 20060413, end: 20060428

REACTIONS (1)
  - PULMONARY EMBOLISM [None]
